FAERS Safety Report 7470938-X (Version None)
Quarter: 2011Q2

REPORT INFORMATION
  Report Type: 
  Country: None (occurrence: None)
  Receive Date: 20110510
  Receipt Date: 20110504
  Transmission Date: 20111010
  Serious: No
  Sender: FDA-Public Use
  Company Number: US-PFIZER INC-2011096040

PATIENT

DRUGS (1)
  1. SOMAVERT [Suspect]

REACTIONS (2)
  - ANXIETY [None]
  - FLUSHING [None]
